FAERS Safety Report 11006603 (Version 2)
Quarter: 2016Q2

REPORT INFORMATION
  Report Type: Spontaneous
  Country: US (occurrence: US)
  Receive Date: 20150409
  Receipt Date: 20160415
  Transmission Date: 20160815
  Serious: No
  Sender: FDA-Public Use
  Company Number: US-ALLERGAN-1412380US

PATIENT
  Sex: Female

DRUGS (7)
  1. LATISSE [Suspect]
     Active Substance: BIMATOPROST
     Indication: INTRAOCULAR PRESSURE INCREASED
  2. PAROXETINE HCL [Concomitant]
     Active Substance: PAROXETINE HYDROCHLORIDE
     Indication: IRRITABLE BOWEL SYNDROME
     Dosage: 20 MG, QHS
  3. VITAMIN D3 [Concomitant]
     Active Substance: CHOLECALCIFEROL
     Dosage: 4000 IU, UNK
  4. VITAMINS [Concomitant]
     Active Substance: VITAMINS
  5. LATISSE [Suspect]
     Active Substance: BIMATOPROST
     Indication: GROWTH OF EYELASHES
     Dosage: 5-7 TIMES WEEKLY, EVERY NIGHT
     Dates: start: 201403
  6. CHOLESTYRAMINE. [Concomitant]
     Active Substance: CHOLESTYRAMINE
     Indication: IRRITABLE BOWEL SYNDROME
     Dosage: UNK
  7. SYNTHROID [Concomitant]
     Active Substance: LEVOTHYROXINE SODIUM
     Indication: THYROID DISORDER
     Dosage: 88 MCG, QAM

REACTIONS (7)
  - Therapeutic response decreased [Unknown]
  - Eye pruritus [Unknown]
  - Inappropriate schedule of drug administration [Unknown]
  - Eyelids pruritus [Unknown]
  - Intraocular pressure increased [Recovering/Resolving]
  - Ocular hyperaemia [Recovered/Resolved]
  - Off label use [Unknown]
